FAERS Safety Report 7133477-1 (Version None)
Quarter: 2010Q4

REPORT INFORMATION
  Report Type: 
  Country: None (occurrence: None)
  Receive Date: 20101202
  Receipt Date: 20101201
  Transmission Date: 20110411
  Serious: Yes (Other)
  Sender: FDA-Public Use
  Company Number: IL-ABBOTT-10P-082-0677799-00

PATIENT
  Age: 33 Year
  Sex: Female
  Weight: 85 kg

DRUGS (2)
  1. REDUCTIL 15MG [Suspect]
     Indication: OBESITY
     Route: 048
     Dates: start: 20100812, end: 20100926
  2. REDUCTIL 15MG [Suspect]
     Route: 048
     Dates: start: 20050101, end: 20060201

REACTIONS (6)
  - COMPLICATION OF PREGNANCY [None]
  - HEADACHE [None]
  - HEMIPLEGIA [None]
  - HEPATIC STEATOSIS [None]
  - PARAESTHESIA [None]
  - THROMBOSIS [None]
